FAERS Safety Report 8997647 (Version 2)
Quarter: 2013Q1

REPORT INFORMATION
  Report Type: Spontaneous
  Country: GB (occurrence: GB)
  Receive Date: 20130104
  Receipt Date: 20130325
  Transmission Date: 20140127
  Serious: Yes (Disabling, Other)
  Sender: FDA-Public Use
  Company Number: PHHY2013GB001027

PATIENT
  Sex: Male

DRUGS (1)
  1. CITALOPRAM [Suspect]
     Indication: DEPRESSION
     Dosage: 10 MG
     Route: 048
     Dates: start: 20101224, end: 20110707

REACTIONS (17)
  - Migraine [Not Recovered/Not Resolved]
  - Influenza like illness [Not Recovered/Not Resolved]
  - Erectile dysfunction [Recovering/Resolving]
  - Libido decreased [Not Recovered/Not Resolved]
  - Feeling abnormal [Unknown]
  - Anorgasmia [Recovering/Resolving]
  - Anger [Unknown]
  - Personality change [Unknown]
  - Mood swings [Unknown]
  - Genital hypoaesthesia [Unknown]
  - Paraesthesia [Unknown]
  - Insomnia [Unknown]
  - Dizziness [Unknown]
  - Pyrexia [Unknown]
  - Elevated mood [Unknown]
  - Depressed mood [Unknown]
  - Drug withdrawal syndrome [Unknown]
